FAERS Safety Report 26064262 (Version 1)
Quarter: 2025Q4

REPORT INFORMATION
  Report Type: Spontaneous
  Country: RU (occurrence: RU)
  Receive Date: 20251119
  Receipt Date: 20251119
  Transmission Date: 20260117
  Serious: Yes (Other)
  Sender: MYLAN
  Company Number: RU-MYLANLABS-2025M1098398

PATIENT
  Age: 45 Year
  Sex: Female

DRUGS (4)
  1. SILDENAFIL [Suspect]
     Active Substance: SILDENAFIL
     Indication: Skin ulcer
     Dosage: 75 MILLIGRAM
  2. RIVAROXABAN [Suspect]
     Active Substance: RIVAROXABAN
     Indication: Skin ulcer
     Dosage: 10 MILLIGRAM
  3. HYDROXYCHLOROQUINE [Suspect]
     Active Substance: HYDROXYCHLOROQUINE
     Indication: Skin ulcer
     Dosage: 400 MILLIGRAM
  4. METHYLPREDNISOLONE [Suspect]
     Active Substance: METHYLPREDNISOLONE
     Indication: Skin ulcer
     Dosage: 4 MILLIGRAM

REACTIONS (1)
  - Drug ineffective [Unknown]
